FAERS Safety Report 9521022 (Version 1)
Quarter: 2013Q1

REPORT INFORMATION
  Report Type: Spontaneous
  Country: US (occurrence: None)
  Receive Date: 20130305
  Receipt Date: 20130305
  Transmission Date: 20140127
  Serious: Yes (Other)
  Sender: FDA-Public Use
  Company Number: 163-21880-12030147

PATIENT
  Age: 67 Year
  Sex: Female

DRUGS (4)
  1. REVLIMID [Suspect]
     Dosage: 10 MG, 1 IN 1 D, PO
     Route: 048
     Dates: start: 20080610
  2. DEXAMETHASONE (DEXAMEHTASONE) (UNKNOWN) [Concomitant]
  3. LASTACAFT (ALCAFTADINE) (UNKNOWN) [Concomitant]
  4. BENADRYL (DIPHENHYDRAMINE HYDROCHLORIDE) (UNKNOWN) [Concomitant]

REACTIONS (10)
  - Clostridium difficile infection [None]
  - Varicose vein [None]
  - Lactose intolerance [None]
  - Weight decreased [None]
  - Rash [None]
  - Pruritus [None]
  - Erythema [None]
  - Diarrhoea [None]
  - Muscle spasms [None]
  - Fatigue [None]
